FAERS Safety Report 21530468 (Version 1)
Quarter: 2022Q4

REPORT INFORMATION
  Report Type: Spontaneous
  Country: US (occurrence: None)
  Receive Date: 20221028
  Receipt Date: 20221028
  Transmission Date: 20230113
  Serious: Yes (Other)
  Sender: FDA-Public Use
  Company Number: None

PATIENT
  Age: 27 Year
  Sex: Female
  Weight: 146.25 kg

DRUGS (2)
  1. HUMIRA [Suspect]
     Active Substance: ADALIMUMAB
     Indication: Hidradenitis
     Dosage: OTHER QUANTITY : 1 INJECTION(S);?OTHER FREQUENCY : ONCE EVERY 2 WEEKS;?
     Route: 058
     Dates: start: 20220913, end: 20220927
  2. Larin Fe (birth control) [Concomitant]

REACTIONS (6)
  - Rash [None]
  - Pruritus [None]
  - Pain [None]
  - Blister [None]
  - Discomfort [None]
  - Emotional disorder [None]

NARRATIVE: CASE EVENT DATE: 20221007
